FAERS Safety Report 7410972-9 (Version None)
Quarter: 2011Q2

REPORT INFORMATION
  Report Type: 
  Country: None (occurrence: None)
  Receive Date: 20110413
  Receipt Date: 20110407
  Transmission Date: 20111010
  Serious: Yes (Other)
  Sender: FDA-Public Use
  Company Number: AU-BRISTOL-MYERS SQUIBB COMPANY-15652290

PATIENT
  Age: 46 Year
  Sex: Male

DRUGS (4)
  1. CYTARABINE [Suspect]
     Indication: ACUTE MYELOID LEUKAEMIA
     Dosage: 3000 MG/M SUP(2).
     Route: 042
  2. PALIFERMIN [Suspect]
     Indication: PROPHYLAXIS
     Dosage: ON DAYS -4, -3 AND -2 BEFORE CHEMOTHERAPY.
     Route: 042
  3. IDARUBICIN [Suspect]
     Indication: ACUTE MYELOID LEUKAEMIA
     Dosage: 1DF= 9 MG/M SUP(2)/DAY,
     Route: 042
  4. ETOPOSIDE [Suspect]
     Indication: ACUTE MYELOID LEUKAEMIA
     Dosage: 1DF= 75 MG/M SUP(2)/DAY.
     Route: 042

REACTIONS (2)
  - PALMAR-PLANTAR ERYTHRODYSAESTHESIA SYNDROME [None]
  - MUCOSAL INFLAMMATION [None]
